FAERS Safety Report 10145957 (Version 4)
Quarter: 2015Q2

REPORT INFORMATION
  Report Type: Spontaneous
  Country: US (occurrence: US)
  Receive Date: 20140501
  Receipt Date: 20150409
  Transmission Date: 20150821
  Serious: Yes (Hospitalization)
  Sender: FDA-Public Use
  Company Number: US-BAYER-2014-062924

PATIENT
  Age: 32 Year
  Sex: Female
  Weight: 111.11 kg

DRUGS (26)
  1. PROTONIX [Concomitant]
     Active Substance: PANTOPRAZOLE SODIUM
  2. PHENYTOIN. [Concomitant]
     Active Substance: PHENYTOIN
  3. BISACODYL. [Concomitant]
     Active Substance: BISACODYL
  4. ZOFRAN [Concomitant]
     Active Substance: ONDANSETRON HYDROCHLORIDE
  5. HYDROCODONE [Concomitant]
     Active Substance: HYDROCODONE
  6. KEPPRA [Concomitant]
     Active Substance: LEVETIRACETAM
  7. NORCO [Concomitant]
     Active Substance: ACETAMINOPHEN\HYDROCODONE BITARTRATE
  8. HALDOL [Concomitant]
     Active Substance: HALOPERIDOL
  9. AUGMENTIN [Concomitant]
     Active Substance: AMOXICILLIN\CLAVULANATE POTASSIUM
     Dosage: 875-125 MG BID 7 DAYS
  10. NAPROXEN. [Concomitant]
     Active Substance: NAPROXEN
     Dosage: 500 MG, BID PRN
     Route: 048
  11. NUBAIN [Concomitant]
     Active Substance: NALBUPHINE HYDROCHLORIDE
     Route: 042
  12. METFORMIN [Concomitant]
     Active Substance: METFORMIN HYDROCHLORIDE
  13. MILK OF MAGNESIA [Concomitant]
     Active Substance: MAGNESIUM HYDROXIDE
  14. YAZ [Suspect]
     Active Substance: DROSPIRENONE\ETHINYL ESTRADIOL
     Indication: MENSTRUAL CYCLE MANAGEMENT
     Dosage: UNK
     Dates: start: 20061213, end: 20070221
  15. PROMETHAZINE [Concomitant]
     Active Substance: PROMETHAZINE\PROMETHAZINE HYDROCHLORIDE
     Indication: NAUSEA
     Dosage: 12.5 MG, 1 Q 4 TO 6 H PRN
     Route: 048
  16. BENICAR HCT [Concomitant]
     Active Substance: HYDROCHLOROTHIAZIDE\OLMESARTAN MEDOXOMIL
     Indication: BLOOD PRESSURE MANAGEMENT
     Dosage: 20/12.5 MG
     Dates: start: 2004
  17. TORADOL [Concomitant]
     Active Substance: KETOROLAC TROMETHAMINE
  18. MORPHINE [Concomitant]
     Active Substance: MORPHINE
  19. HYDROCODONE W/ACETAMINOPHEN [Concomitant]
     Active Substance: ACETAMINOPHEN\HYDROCODONE BITARTRATE
     Dosage: 5 MG/ 325 MG ONE TO TWO Q 4-6 H PRN
     Route: 048
  20. ATIVAN [Concomitant]
     Active Substance: LORAZEPAM
  21. SYNTHROID [Concomitant]
     Active Substance: LEVOTHYROXINE SODIUM
  22. YASMIN [Suspect]
     Active Substance: DROSPIRENONE\ETHINYL ESTRADIOL
     Indication: MENSTRUAL CYCLE MANAGEMENT
     Dosage: UNK
     Dates: start: 20070222, end: 20070921
  23. LEVOTHYROXINE SODIUM. [Concomitant]
     Active Substance: LEVOTHYROXINE SODIUM
     Indication: HYPOTHYROIDISM
     Dosage: 100 MCG/24HR, UNK
     Route: 048
     Dates: start: 2004
  24. DECADRON [Concomitant]
     Active Substance: DEXAMETHASONE
  25. INSULIN [INSULIN] [Concomitant]
     Active Substance: INSULIN NOS
  26. DILANTIN [Concomitant]
     Active Substance: PHENYTOIN

REACTIONS (34)
  - General physical health deterioration [None]
  - Pain [None]
  - Phantom pain [None]
  - Leukocytosis [None]
  - Injury [None]
  - Mobility decreased [None]
  - Activities of daily living impaired [None]
  - Swelling [None]
  - Musculoskeletal disorder [None]
  - Intracranial venous sinus thrombosis [None]
  - Seizure [None]
  - Memory impairment [None]
  - Hypoaesthesia [None]
  - Mental status changes [None]
  - Migraine [None]
  - Fatigue [None]
  - Loss of consciousness [None]
  - Anxiety [None]
  - Haemorrhagic stroke [None]
  - Eye movement disorder [None]
  - Oral disorder [None]
  - Nausea [None]
  - Headache [None]
  - Aphasia [None]
  - Blood pressure increased [None]
  - Dysarthria [None]
  - Cerebrovascular accident [None]
  - Hemiparesis [None]
  - Dysphagia [None]
  - Balance disorder [None]
  - Brain oedema [None]
  - Apraxia [None]
  - Speech disorder [None]
  - Fear [None]

NARRATIVE: CASE EVENT DATE: 200709
